FAERS Safety Report 16203170 (Version 1)
Quarter: 2019Q2

REPORT INFORMATION
  Report Type: Spontaneous
  Country: US (occurrence: US)
  Receive Date: 20190416
  Receipt Date: 20190416
  Transmission Date: 20190711
  Serious: No
  Sender: FDA-Public Use
  Company Number: US-TEVA-2019-US-1028915

PATIENT

DRUGS (2)
  1. DIAZEPAM. [Suspect]
     Active Substance: DIAZEPAM
     Indication: NERVOUSNESS
     Dosage: 1/2 TABLET TWICE DAILY
     Route: 065
  2. DIAZEPAM MAYNE PHARMA [Suspect]
     Active Substance: DIAZEPAM
     Indication: NERVOUSNESS

REACTIONS (2)
  - Drug ineffective [Unknown]
  - Wrong technique in product usage process [Unknown]
